FAERS Safety Report 20234345 (Version 1)
Quarter: 2021Q4

REPORT INFORMATION
  Report Type: Spontaneous
  Country: US (occurrence: US)
  Receive Date: 20211227
  Receipt Date: 20211227
  Transmission Date: 20220303
  Serious: No
  Sender: FDA-Public Use
  Company Number: US-FOUNDATIONCONSUMERHC-2021-US-021894

PATIENT
  Sex: Female

DRUGS (1)
  1. PLAN B ONE-STEP [Suspect]
     Active Substance: LEVONORGESTREL
     Indication: Post coital contraception
     Dosage: 1.5 MG
     Route: 065
     Dates: start: 20210905, end: 20210905

REACTIONS (4)
  - Vaginal haemorrhage [Unknown]
  - Nausea [Unknown]
  - Dysmenorrhoea [Unknown]
  - Menstruation delayed [Unknown]

NARRATIVE: CASE EVENT DATE: 20210911
